FAERS Safety Report 6575922-6 (Version None)
Quarter: 2010Q1

REPORT INFORMATION
  Report Type: 
  Country: None (occurrence: None)
  Receive Date: 20100209
  Receipt Date: 20100127
  Transmission Date: 20100710
  Serious: Yes (Hospitalization)
  Sender: FDA-Public Use
  Company Number: NL-MEDIMMUNE-MEDI-0010457

PATIENT
  Sex: Male
  Weight: 9.97 kg

DRUGS (4)
  1. SYNAGIS [Suspect]
     Route: 030
     Dates: start: 20080101
  2. IPRATROPIUM BROMIDE [Concomitant]
  3. RANITIDINE [Concomitant]
  4. BECLOMETASONE DIPROPIONATE [Concomitant]

REACTIONS (4)
  - DYSPNOEA [None]
  - PNEUMONIA [None]
  - PYREXIA [None]
  - WHEEZING [None]
